FAERS Safety Report 8327419-0 (Version None)
Quarter: 2012Q2

REPORT INFORMATION
  Report Type: 
  Country: None (occurrence: None)
  Receive Date: 20120424
  Receipt Date: 20120409
  Transmission Date: 20120825
  Serious: Yes (Other)
  Sender: FDA-Public Use
  Company Number: 2012PROUSA01287

PATIENT
  Age: 72 Year
  Sex: Male
  Weight: 90.1 kg

DRUGS (3)
  1. PROVENGE (SIPULECEL-T) SUSPENSION, 250ML [Suspect]
     Indication: PROSTATE CANCER METASTATIC
     Dosage: 250 ML, SINGLE, INTRAVENOUS
     Route: 042
     Dates: start: 20120322, end: 20120322
  2. PROVENGE (SIPULECEL-T) SUSPENSION, 250ML [Suspect]
     Indication: PROSTATE CANCER METASTATIC
     Dosage: 250 ML, SINGLE, INTRAVENOUS
     Route: 042
     Dates: start: 20120308, end: 20120308
  3. PROVENGE (SIPULECEL-T) SUSPENSION, 250ML [Suspect]
     Indication: PROSTATE CANCER METASTATIC
     Dosage: 250 ML, SINGLE, INTRAVENOUS
     Route: 042
     Dates: start: 20120405, end: 20120405

REACTIONS (5)
  - VERTIGO [None]
  - DEAFNESS TRANSITORY [None]
  - DEHYDRATION [None]
  - CHILLS [None]
  - DEAFNESS UNILATERAL [None]
